FAERS Safety Report 6177025-1 (Version None)
Quarter: 2009Q2

REPORT INFORMATION
  Report Type: 
  Country: None (occurrence: None)
  Receive Date: 20090501
  Receipt Date: 20090416
  Transmission Date: 20091009
  Serious: Yes (Hospitalization)
  Sender: FDA-Public Use
  Company Number: FR-GENENTECH-282122

PATIENT
  Sex: Male

DRUGS (5)
  1. RITUXIMAB [Suspect]
     Indication: MANTLE CELL LYMPHOMA
     Dosage: UNK
     Route: 065
  2. PREDNISONE [Suspect]
     Indication: MANTLE CELL LYMPHOMA
     Dosage: UNK
     Route: 065
  3. ZENATE [Concomitant]
     Indication: DRUG USE FOR UNKNOWN INDICATION
     Dosage: UNK
     Dates: start: 20090224
  4. OFLOXACIN [Concomitant]
     Indication: DRUG USE FOR UNKNOWN INDICATION
     Dosage: UNK
     Dates: start: 20090224
  5. NEULASTA [Concomitant]
     Indication: DRUG USE FOR UNKNOWN INDICATION
     Dosage: UNK
     Dates: end: 20090408

REACTIONS (1)
  - HYPERTHERMIA [None]
